FAERS Safety Report 20641252 (Version 5)
Quarter: 2023Q1

REPORT INFORMATION
  Report Type: Report from Study
  Country: US (occurrence: US)
  Receive Date: 20220328
  Receipt Date: 20230131
  Transmission Date: 20230417
  Serious: Yes (Hospitalization, Other)
  Sender: FDA-Public Use
  Company Number: US-ABBVIE-22K-163-4332166-00

PATIENT
  Sex: Female
  Weight: 74 kg

DRUGS (11)
  1. RINVOQ [Suspect]
     Active Substance: UPADACITINIB
     Indication: Rheumatoid arthritis
     Dosage: 15 MILLIGRAM
     Route: 048
  2. RINVOQ [Suspect]
     Active Substance: UPADACITINIB
     Indication: Rheumatoid arthritis
     Route: 048
     Dates: start: 202212
  3. RINVOQ [Suspect]
     Active Substance: UPADACITINIB
     Indication: Rheumatoid arthritis
     Dosage: START DATE: 2021
     Route: 048
     Dates: end: 202112
  4. RINVOQ [Suspect]
     Active Substance: UPADACITINIB
     Indication: Rheumatoid arthritis
     Route: 048
     Dates: end: 202211
  5. RINVOQ [Suspect]
     Active Substance: UPADACITINIB
     Indication: Rheumatoid arthritis
     Dosage: START DATE TEXT: -JUN-2022 OR -JUL-2022?STOP DATE TEXT: -JUN-2022 OR -JUL-2022
     Route: 048
  6. LEVOTHYROXINE [Concomitant]
     Active Substance: LEVOTHYROXINE
     Indication: Product used for unknown indication
  7. POTASSIUM [Concomitant]
     Active Substance: POTASSIUM
     Indication: Product used for unknown indication
     Route: 042
     Dates: start: 202211, end: 202211
  8. JANSSEN COVID-19 VACCINE [Concomitant]
     Active Substance: AD26.COV2.S
     Indication: COVID-19 immunisation
     Dosage: SECOND DOSE
     Route: 030
     Dates: start: 20211105, end: 20211105
  9. JANSSEN COVID-19 VACCINE [Concomitant]
     Active Substance: AD26.COV2.S
     Indication: COVID-19 immunisation
     Dosage: FIRST DOSE
     Route: 030
     Dates: start: 20210411, end: 20210411
  10. JANSSEN COVID-19 VACCINE [Concomitant]
     Active Substance: AD26.COV2.S
     Indication: COVID-19 immunisation
     Dosage: THIRD DOSE
     Route: 030
     Dates: start: 20220425, end: 20220425
  11. METHOTREXATE [Suspect]
     Active Substance: METHOTREXATE
     Indication: Rheumatoid arthritis
     Dosage: FIRST ADMIN DATE-2021
     Route: 065

REACTIONS (23)
  - COVID-19 [Recovered/Resolved]
  - Pneumonia [Recovered/Resolved]
  - Delirium [Recovered/Resolved]
  - Pain [Unknown]
  - Dehydration [Recovered/Resolved]
  - Pneumonia [Recovered/Resolved]
  - Decreased appetite [Unknown]
  - Asthenia [Recovered/Resolved]
  - Red blood cell abnormality [Not Recovered/Not Resolved]
  - Delirium [Recovered/Resolved]
  - Chest discomfort [Not Recovered/Not Resolved]
  - Loss of consciousness [Recovered/Resolved]
  - Iron overload [Not Recovered/Not Resolved]
  - Macrocytosis [Not Recovered/Not Resolved]
  - Hyperhidrosis [Recovered/Resolved]
  - COVID-19 [Recovered/Resolved]
  - Asthenia [Unknown]
  - Dehydration [Recovered/Resolved]
  - Illness [Recovered/Resolved]
  - Anaemia [Not Recovered/Not Resolved]
  - Hyperhidrosis [Recovered/Resolved]
  - Hypotension [Recovered/Resolved]
  - Memory impairment [Recovering/Resolving]

NARRATIVE: CASE EVENT DATE: 20200101
